FAERS Safety Report 15157145 (Version 2)
Quarter: 2020Q3

REPORT INFORMATION
  Report Type: Report from Study
  Country: CA (occurrence: CA)
  Receive Date: 20180718
  Receipt Date: 20200721
  Transmission Date: 20201102
  Serious: Yes (Death)
  Sender: FDA-Public Use
  Company Number: CA-INCYTE CORPORATION-2018IN007128

PATIENT

DRUGS (1)
  1. JAKAVI [Suspect]
     Active Substance: RUXOLITINIB
     Indication: MYELOFIBROSIS
     Dosage: 20 MG, QD
     Route: 048
     Dates: start: 201706

REACTIONS (6)
  - Eating disorder [Unknown]
  - Splenomegaly [Unknown]
  - Renal cyst [Unknown]
  - Death [Fatal]
  - Hepatic steatosis [Unknown]
  - Hepatomegaly [Unknown]
